FAERS Safety Report 9130756 (Version 3)
Quarter: 2013Q1

REPORT INFORMATION
  Report Type: Spontaneous
  Country: AU (occurrence: AU)
  Receive Date: 20130301
  Receipt Date: 20130326
  Transmission Date: 20140127
  Serious: Yes (Hospitalization, Other)
  Sender: FDA-Public Use
  Company Number: PHHY2013AU019937

PATIENT
  Sex: Male

DRUGS (2)
  1. EXJADE [Suspect]
     Indication: SICKLE CELL ANAEMIA
     Dosage: 2500 MG,DIVIDED IN 3 DOSES PER DAY
     Route: 048
     Dates: start: 20120901
  2. MULTI-VIT [Concomitant]

REACTIONS (10)
  - Cystitis [Unknown]
  - Weight decreased [Unknown]
  - Haemoglobin decreased [Unknown]
  - Blood iron increased [Unknown]
  - Oesophageal pain [Unknown]
  - Oesophageal discomfort [Unknown]
  - Chest discomfort [Unknown]
  - Dysphagia [Unknown]
  - Anxiety [Unknown]
  - Drug ineffective [Unknown]
